FAERS Safety Report 9362795 (Version 1)
Quarter: 2013Q2

REPORT INFORMATION
  Report Type: Spontaneous
  Country: GB (occurrence: GB)
  Receive Date: 20130624
  Receipt Date: 20130624
  Transmission Date: 20140414
  Serious: Yes (Other)
  Sender: FDA-Public Use
  Company Number: GB-AMGEN-GBRSP2013043438

PATIENT
  Age: 74 Year
  Sex: Male
  Weight: 72.4 kg

DRUGS (1)
  1. ETANERCEPT [Suspect]
     Indication: ANKYLOSING SPONDYLITIS
     Dosage: 25 MG, 2X/WEEK
     Route: 058
     Dates: start: 20000426

REACTIONS (1)
  - Prostate cancer [Not Recovered/Not Resolved]
